FAERS Safety Report 9714227 (Version 2)
Quarter: 2015Q3

REPORT INFORMATION
  Report Type: Spontaneous
  Country: US (occurrence: US)
  Receive Date: 20131126
  Receipt Date: 20150803
  Transmission Date: 20151125
  Serious: No
  Sender: FDA-Public Use
  Company Number: US-GILEAD-2008-0019474

PATIENT
  Age: 58 Year
  Sex: Female
  Weight: 104.33 kg

DRUGS (12)
  1. LETAIRIS [Suspect]
     Active Substance: AMBRISENTAN
     Route: 048
     Dates: start: 20081002
  2. TEGRETOL [Concomitant]
     Active Substance: CARBAMAZEPINE
  3. DULCOLAX EC [Concomitant]
  4. METOPROLOL [Concomitant]
     Active Substance: METOPROLOL
  5. PAXIL [Concomitant]
     Active Substance: PAROXETINE HYDROCHLORIDE
  6. KLOR-CON [Concomitant]
     Active Substance: POTASSIUM CHLORIDE
  7. GLYCOLAX PACKET [Concomitant]
  8. VIAGRA [Concomitant]
     Active Substance: SILDENAFIL CITRATE
  9. DIOVAN HCT [Concomitant]
     Active Substance: HYDROCHLOROTHIAZIDE\VALSARTAN
  10. COUMADIN [Concomitant]
     Active Substance: WARFARIN SODIUM
  11. LASIX [Concomitant]
     Active Substance: FUROSEMIDE
  12. DOXEPIN [Concomitant]
     Active Substance: DOXEPIN

REACTIONS (1)
  - Nasal congestion [None]
